FAERS Safety Report 7136731-2 (Version None)
Quarter: 2010Q4

REPORT INFORMATION
  Report Type: 
  Country: None (occurrence: None)
  Receive Date: 20101118
  Receipt Date: 20101104
  Transmission Date: 20110411
  Serious: Yes (Hospitalization)
  Sender: FDA-Public Use
  Company Number: 1000017301

PATIENT
  Age: 35 Year
  Sex: Female

DRUGS (1)
  1. ESCITALOPRAM [Suspect]
     Indication: DEPRESSION
     Dosage: 5 MG (5 MG, 1 IN 1 D)
     Dates: start: 20101103, end: 20101101

REACTIONS (4)
  - ANXIETY [None]
  - HAEMATEMESIS [None]
  - HEADACHE [None]
  - NAUSEA [None]
